FAERS Safety Report 9246871 (Version 1)
Quarter: 2013Q2

REPORT INFORMATION
  Report Type: Spontaneous
  Country: US (occurrence: US)
  Receive Date: 20130422
  Receipt Date: 20130422
  Transmission Date: 20140414
  Serious: No
  Sender: FDA-Public Use
  Company Number: US-ASTRAZENECA-2013SE21567

PATIENT
  Age: 80 Year
  Sex: Male
  Weight: 93 kg

DRUGS (10)
  1. PULMICORT RESPULES [Suspect]
     Indication: NASAL CONGESTION
     Route: 055
     Dates: start: 2012
  2. PULMICORT RESPULES [Suspect]
     Indication: NASAL CONGESTION
     Route: 055
  3. LISINOPRIL [Suspect]
     Indication: CARDIAC FAILURE
     Dosage: 5 MG
     Route: 048
     Dates: start: 2012
  4. BAYER ASPIRIN [Concomitant]
     Dosage: 81 MG
     Route: 048
     Dates: start: 2012
  5. GUAIFENESIN [Concomitant]
     Indication: NASAL CONGESTION
     Route: 048
  6. PSYLLIUM [Concomitant]
     Indication: CONSTIPATION
     Route: 048
     Dates: start: 2011
  7. IPRATROPIUM BROMIDE [Concomitant]
     Indication: NASAL CONGESTION
     Dosage: .03% BID
     Route: 045
     Dates: start: 2012
  8. CHERATUSSIN [Concomitant]
     Indication: COUGH
     Route: 048
  9. VITAMIN C [Concomitant]
  10. CALCIUM [Concomitant]

REACTIONS (4)
  - Increased upper airway secretion [Unknown]
  - Cough [Unknown]
  - Intentional drug misuse [Unknown]
  - Off label use [Unknown]
